FAERS Safety Report 5987241-7 (Version None)
Quarter: 2008Q4

REPORT INFORMATION
  Report Type: 
  Country: None (occurrence: None)
  Receive Date: 20081203
  Receipt Date: 20081125
  Transmission Date: 20090506
  Serious: Yes (Death)
  Sender: FDA-Public Use
  Company Number: WAES 0812USA00215

PATIENT
  Age: 80 Year
  Sex: Female

DRUGS (8)
  1. FOSAMAX [Suspect]
     Indication: OSTEOPOROSIS
     Dosage: 35 MG/WKY PO
     Route: 048
     Dates: start: 20070412, end: 20080512
  2. ADALAT CC [Concomitant]
  3. ALFAROL [Concomitant]
  4. IPD [Concomitant]
  5. LASIX [Concomitant]
  6. SELECTOL [Concomitant]
  7. SEPLINOK [Concomitant]
  8. THEO-DUR [Concomitant]

REACTIONS (1)
  - CEREBRAL HAEMORRHAGE [None]
